FAERS Safety Report 5664857-9 (Version None)
Quarter: 2008Q1

REPORT INFORMATION
  Report Type: 
  Country: None (occurrence: None)
  Receive Date: 20080314
  Receipt Date: 20080303
  Transmission Date: 20080703
  Serious: Yes (Other)
  Sender: FDA-Public Use
  Company Number: JP-PFIZER INC-2008015285

PATIENT
  Age: 84 Year
  Sex: Male
  Weight: 47 kg

DRUGS (4)
  1. VFEND [Suspect]
     Dosage: DAILY DOSE:800MG
     Route: 048
  2. VFEND [Suspect]
     Dosage: DAILY DOSE:400MG
  3. DRUG, UNSPECIFIED [Concomitant]
  4. TAKEPRON [Concomitant]

REACTIONS (1)
  - PLATELET COUNT DECREASED [None]
